FAERS Safety Report 10720781 (Version 1)
Quarter: 2015Q1

REPORT INFORMATION
  Report Type: Spontaneous
  Country: US (occurrence: US)
  Receive Date: 20150119
  Receipt Date: 20150119
  Transmission Date: 20150721
  Serious: No
  Sender: FDA-Public Use
  Company Number: US-UNITED THERAPEUTICS-UNT-2014-006124

PATIENT
  Age: 51 Year
  Sex: Female
  Weight: 46.71 kg

DRUGS (4)
  1. TYVASO [Suspect]
     Active Substance: TREPROSTINIL
     Indication: PULMONARY ARTERIAL HYPERTENSION
     Dosage: 18-54 MICROGRAMS, QID
     Dates: start: 20120830
  2. LETAIRIS [Concomitant]
     Active Substance: AMBRISENTAN
     Indication: PRODUCT USED FOR UNKNOWN INDICATION
     Dosage: 0.5 MG, UNK
  3. ADEMPAS [Suspect]
     Active Substance: RIOCIGUAT
     Indication: PRODUCT USED FOR UNKNOWN INDICATION
     Dosage: UNK
     Dates: end: 2014
  4. ADEMPAS [Suspect]
     Active Substance: RIOCIGUAT
     Dosage: .5 MG, UNK
     Dates: start: 20140808

REACTIONS (8)
  - Nausea [Unknown]
  - Haematemesis [Unknown]
  - Vomiting [Unknown]
  - Cough [Unknown]
  - Otorrhoea [Unknown]
  - Haemoptysis [Unknown]
  - Abdominal pain upper [Unknown]
  - Paranasal sinus hypersecretion [Unknown]

NARRATIVE: CASE EVENT DATE: 20140806
